FAERS Safety Report 6752379-3 (Version None)
Quarter: 2010Q2

REPORT INFORMATION
  Report Type: 
  Country: None (occurrence: None)
  Receive Date: 20100601
  Receipt Date: 20100601
  Transmission Date: 20101027
  Serious: Yes (Disabling)
  Sender: FDA-Public Use
  Company Number: None

PATIENT
  Sex: Male
  Weight: 76 kg

DRUGS (1)
  1. PROPRANOLOL SEVERAL - SEE CAPROPRANOLOL [Suspect]

REACTIONS (4)
  - BLOOD PRESSURE INADEQUATELY CONTROLLED [None]
  - IDIOSYNCRATIC DRUG REACTION [None]
  - INFLUENZA LIKE ILLNESS [None]
  - IRITIS [None]
